FAERS Safety Report 20358966 (Version 1)
Quarter: 2022Q1

REPORT INFORMATION
  Report Type: Spontaneous
  Country: NZ (occurrence: NZ)
  Receive Date: 20220120
  Receipt Date: 20220120
  Transmission Date: 20220423
  Serious: Yes (Other)
  Sender: FDA-Public Use
  Company Number: NZ-BAXTER-2022BAX000908

PATIENT
  Sex: Female

DRUGS (5)
  1. DEXTROSE [Suspect]
     Active Substance: DEXTROSE
     Indication: Medication dilution
     Dosage: GLUCOSE WITH OXALIPLATIN
     Route: 065
  2. DEXTROSE [Suspect]
     Active Substance: DEXTROSE
     Dosage: GLUCOSE WITH OXALIPLATIN, VIA PORT
     Route: 042
     Dates: start: 20211228, end: 20211228
  3. SODIUM CHLORIDE [Suspect]
     Active Substance: SODIUM CHLORIDE
     Indication: Product used for unknown indication
     Dosage: NORMAL SALINE THROUGH PORT STAT
     Route: 065
     Dates: start: 20211228
  4. OXALIPLATIN [Suspect]
     Active Substance: OXALIPLATIN
     Indication: Product used for unknown indication
     Route: 065
  5. OXALIPLATIN [Suspect]
     Active Substance: OXALIPLATIN
     Dosage: VIA PORT
     Route: 042
     Dates: start: 20211228, end: 20211228

REACTIONS (6)
  - Oxygen saturation decreased [Unknown]
  - Pain [Recovering/Resolving]
  - Chills [Unknown]
  - Neuralgia [Recovered/Resolved]
  - Adverse drug reaction [Unknown]
  - Pruritus [Recovered/Resolved]

NARRATIVE: CASE EVENT DATE: 20211228
